FAERS Safety Report 15992448 (Version 2)
Quarter: 2019Q1

REPORT INFORMATION
  Report Type: Spontaneous
  Country: US (occurrence: US)
  Receive Date: 20190221
  Receipt Date: 20190311
  Transmission Date: 20190418
  Serious: No
  Sender: FDA-Public Use
  Company Number: US-ALLERGAN-1847223US

PATIENT
  Age: 66 Year
  Sex: Female
  Weight: 72.56 kg

DRUGS (3)
  1. BP MEDS [Concomitant]
     Indication: HYPERTENSION
     Dosage: UNK
  2. CHOLESTEROL MEDS [Concomitant]
     Indication: HYPERLIPIDAEMIA
     Dosage: UNK
  3. OXYTROL [Suspect]
     Active Substance: OXYBUTYNIN
     Indication: HYPERTONIC BLADDER
     Dosage: UNK
     Route: 062
     Dates: start: 201809, end: 20180923

REACTIONS (4)
  - Mastication disorder [Recovering/Resolving]
  - Sinus headache [Recovering/Resolving]
  - Toothache [Recovering/Resolving]
  - Sensitivity of teeth [Recovering/Resolving]

NARRATIVE: CASE EVENT DATE: 201809
